FAERS Safety Report 23756244 (Version 1)
Quarter: 2024Q2

REPORT INFORMATION
  Report Type: Spontaneous
  Country: US (occurrence: None)
  Receive Date: 20240417
  Receipt Date: 20240417
  Transmission Date: 20240716
  Serious: No
  Sender: FDA-Public Use
  Company Number: None

PATIENT
  Age: 89 Year
  Sex: Female

DRUGS (1)
  1. PROLIA [Suspect]
     Active Substance: DENOSUMAB
     Route: 030
     Dates: start: 20221101, end: 20231017

REACTIONS (2)
  - Cerebrovascular accident [None]
  - Cardiac disorder [None]

NARRATIVE: CASE EVENT DATE: 20240116
